FAERS Safety Report 9494064 (Version 2)
Quarter: 2013Q3

REPORT INFORMATION
  Report Type: Spontaneous
  Country: US (occurrence: US)
  Receive Date: 20130903
  Receipt Date: 20130909
  Transmission Date: 20140515
  Serious: Yes (Hospitalization, Other)
  Sender: FDA-Public Use
  Company Number: US-RB-057557-13

PATIENT
  Sex: Male

DRUGS (3)
  1. MUCINEX DM MAXIMUM STRENGTH [Suspect]
     Indication: SINUSITIS
     Dosage: LAST USED ON ??/AUG/2011
     Route: 048
     Dates: start: 201101
  2. MUCINEX DM MAXIMUM STRENGTH [Suspect]
     Route: 048
     Dates: start: 201108
  3. TAMIFLU [Suspect]
     Indication: PRODUCT USED FOR UNKNOWN INDICATION

REACTIONS (9)
  - Schizophrenia [Recovered/Resolved]
  - Mania [Recovered/Resolved]
  - Hallucination [Recovered/Resolved]
  - Euphoric mood [Recovered/Resolved]
  - Tachyphrenia [Recovered/Resolved]
  - Abnormal behaviour [Recovered/Resolved]
  - Paraesthesia [Recovered/Resolved]
  - Sleep disorder [Recovered/Resolved]
  - Off label use [Recovered/Resolved]
